FAERS Safety Report 5982475-X (Version None)
Quarter: 2008Q4

REPORT INFORMATION
  Report Type: 
  Country: None (occurrence: None)
  Receive Date: 20081208
  Receipt Date: 20081203
  Transmission Date: 20090506
  Serious: Yes (Other)
  Sender: FDA-Public Use
  Company Number: DE-BRISTOL-MYERS SQUIBB COMPANY-14427819

PATIENT
  Age: 36 Year
  Sex: Female

DRUGS (3)
  1. SUSTIVA [Suspect]
     Indication: ANTIRETROVIRAL THERAPY
     Route: 048
     Dates: start: 20060810, end: 20070320
  2. TRUVADA [Suspect]
     Indication: ANTIRETROVIRAL THERAPY
     Route: 048
     Dates: start: 20060810
  3. VIRACEPT [Suspect]
     Indication: ANTIRETROVIRAL THERAPY
     Route: 048
     Dates: start: 20070321

REACTIONS (2)
  - ABORTION SPONTANEOUS [None]
  - PREGNANCY [None]
